FAERS Safety Report 4768782-7 (Version None)
Quarter: 2005Q3

REPORT INFORMATION
  Report Type: 
  Country: None (occurrence: None)
  Receive Date: 20050914
  Receipt Date: 20050906
  Transmission Date: 20060218
  Serious: Yes (Hospitalization, Other)
  Sender: FDA-Public Use
  Company Number: 200516495US

PATIENT
  Sex: Male
  Weight: 127 kg

DRUGS (6)
  1. LANTUS [Suspect]
     Indication: DIABETES MELLITUS NON-INSULIN-DEPENDENT
     Dosage: DOSE UNIT: UNITS
     Dates: start: 20040101, end: 20050101
  2. REGULAR INSULIN [Concomitant]
     Dosage: DOSE: NOT PROVIDED
  3. MELATONIN [Concomitant]
     Indication: INSOMNIA
     Dosage: DOSE: NOT PROVIDED
  4. CAYENNE PEPPER [Concomitant]
     Dosage: DOSE: NOT PROVIDED
  5. HERBAL PREPARATION [Concomitant]
     Dosage: DOSE: NOT PROVIDED
  6. CARDIOVASCULAR SYSTEM DRUGS [Concomitant]
     Dosage: DOSE: NOT PROVIDED

REACTIONS (6)
  - BLOOD GLUCOSE INCREASED [None]
  - FALL [None]
  - INJECTION SITE HAEMORRHAGE [None]
  - INSOMNIA [None]
  - LOWER LIMB FRACTURE [None]
  - NIGHT SWEATS [None]
